FAERS Safety Report 18829246 (Version 1)
Quarter: 2021Q1

REPORT INFORMATION
  Report Type: Spontaneous
  Country: US (occurrence: US)
  Receive Date: 20210201
  Receipt Date: 20210201
  Transmission Date: 20210419
  Serious: No
  Sender: FDA-Public Use
  Company Number: US-ABBVIE-20K-163-3592992-00

PATIENT
  Age: 68 Year
  Sex: Male
  Weight: 97.61 kg

DRUGS (3)
  1. HUMIRA [Suspect]
     Active Substance: ADALIMUMAB
     Route: 058
  2. OTEZLA [Concomitant]
     Active Substance: APREMILAST
     Indication: RHEUMATOID ARTHRITIS
  3. HUMIRA [Suspect]
     Active Substance: ADALIMUMAB
     Indication: RHEUMATOID ARTHRITIS
     Route: 058
     Dates: start: 2017

REACTIONS (5)
  - Rash [Recovered/Resolved]
  - Incorrect dose administered [Not Recovered/Not Resolved]
  - Product administered at inappropriate site [Recovered/Resolved]
  - Rheumatoid arthritis [Recovered/Resolved]
  - Device issue [Recovered/Resolved]

NARRATIVE: CASE EVENT DATE: 2019
